FAERS Safety Report 12982965 (Version 1)
Quarter: 2016Q4

REPORT INFORMATION
  Report Type: Spontaneous
  Country: US (occurrence: US)
  Receive Date: 20161129
  Receipt Date: 20161129
  Transmission Date: 20170207
  Serious: No
  Sender: FDA-Public Use
  Company Number: US-MALLINCKRODT-T201600272

PATIENT
  Age: 62 Year
  Sex: Female
  Weight: 72 kg

DRUGS (4)
  1. PERCOCET [Concomitant]
     Active Substance: ACETAMINOPHEN\OXYCODONE HYDROCHLORIDE
     Dosage: 10/325, QID
  2. XANAX [Concomitant]
     Active Substance: ALPRAZOLAM
  3. FENTANYL TRANSDERMAL SYSTEM [Suspect]
     Active Substance: FENTANYL
     Indication: SPINAL COLUMN INJURY
     Dosage: 100 MCG/HR EVERY 48 HOURS
     Route: 062
     Dates: start: 20160120
  4. RANITIDINE. [Concomitant]
     Active Substance: RANITIDINE

REACTIONS (4)
  - Burns second degree [Not Recovered/Not Resolved]
  - Device leakage [Not Recovered/Not Resolved]
  - Application site haemorrhage [Not Recovered/Not Resolved]
  - Burns first degree [Not Recovered/Not Resolved]

NARRATIVE: CASE EVENT DATE: 20160120
